FAERS Safety Report 6145300-2 (Version None)
Quarter: 2009Q2

REPORT INFORMATION
  Report Type: 
  Country: None (occurrence: None)
  Receive Date: 20090406
  Receipt Date: 20090330
  Transmission Date: 20091009
  Serious: Yes (Congenital Anomaly)
  Sender: FDA-Public Use
  Company Number: NO-ASTRAZENECA-2009SE01330

PATIENT
  Age: 0 Week

DRUGS (3)
  1. ATACAND [Suspect]
     Indication: CARDIAC FAILURE
     Route: 064
     Dates: start: 20071217, end: 20090223
  2. SELO-ZOK [Concomitant]
     Indication: CARDIAC FAILURE
     Route: 064
  3. SIMVASTATIN [Concomitant]
     Indication: CARDIAC FAILURE
     Route: 064
     Dates: start: 20071217

REACTIONS (6)
  - FOETAL DISORDER [None]
  - OEDEMA DUE TO RENAL DISEASE [None]
  - OLIGOHYDRAMNIOS [None]
  - OLIGURIA [None]
  - PLACENTAL DISORDER [None]
  - RENAL FAILURE [None]
